FAERS Safety Report 21684627 (Version 7)
Quarter: 2023Q1

REPORT INFORMATION
  Report Type: Report from Study
  Country: CA (occurrence: CA)
  Receive Date: 20221205
  Receipt Date: 20230203
  Transmission Date: 20230417
  Serious: Yes (Other)
  Sender: FDA-Public Use
  Company Number: CA-GILEAD-2022-0586258

PATIENT
  Age: 53 Year
  Sex: Female

DRUGS (68)
  1. SACITUZUMAB GOVITECAN-HZIY [Suspect]
     Active Substance: SACITUZUMAB GOVITECAN-HZIY
     Indication: Triple negative breast cancer
     Dosage: 409 MG
     Route: 042
     Dates: start: 20220608
  2. SACITUZUMAB GOVITECAN-HZIY [Suspect]
     Active Substance: SACITUZUMAB GOVITECAN-HZIY
     Dosage: 409 MG
     Route: 042
     Dates: start: 20220608
  3. SACITUZUMAB GOVITECAN-HZIY [Suspect]
     Active Substance: SACITUZUMAB GOVITECAN-HZIY
     Dosage: UNK
     Route: 042
     Dates: start: 20220921
  4. SACITUZUMAB GOVITECAN-HZIY [Suspect]
     Active Substance: SACITUZUMAB GOVITECAN-HZIY
     Dosage: UNK
     Route: 042
     Dates: start: 20221013, end: 20221102
  5. SACITUZUMAB GOVITECAN-HZIY [Suspect]
     Active Substance: SACITUZUMAB GOVITECAN-HZIY
     Dosage: UNK
     Route: 042
     Dates: start: 20230104
  6. CANNABIS SATIVA SUBSP. INDICA TOP [Suspect]
     Active Substance: CANNABIS SATIVA SUBSP. INDICA TOP
     Indication: Pain
     Dosage: EXTRA
     Route: 065
  7. CANNABIS SATIVA SUBSP. INDICA TOP [Suspect]
     Active Substance: CANNABIS SATIVA SUBSP. INDICA TOP
     Indication: Somnolence
  8. CANNABIS SATIVA SUBSP. INDICA TOP [Suspect]
     Active Substance: CANNABIS SATIVA SUBSP. INDICA TOP
     Indication: Appetite disorder
  9. CETIRIZINE HYDROCHLORIDE [Concomitant]
     Active Substance: CETIRIZINE HYDROCHLORIDE
     Dosage: 10 MG PO (PRE-MEDICATION PRIOR TO TRODELVY)
  10. CETIRIZINE HYDROCHLORIDE [Concomitant]
     Active Substance: CETIRIZINE HYDROCHLORIDE
     Dosage: 10 MG PO (PRE-MEDICATION PRIOR TO TRODELVY)
  11. CETIRIZINE HYDROCHLORIDE [Concomitant]
     Active Substance: CETIRIZINE HYDROCHLORIDE
     Dosage: 10 MG PO (PRE-MEDICATION PRIOR TO TRODELVY)
  12. CETIRIZINE HYDROCHLORIDE [Concomitant]
     Active Substance: CETIRIZINE HYDROCHLORIDE
     Dosage: 10 MG PO (PRE-MEDICATION PRIOR TO TRODELVY)
  13. CETIRIZINE HYDROCHLORIDE [Concomitant]
     Active Substance: CETIRIZINE HYDROCHLORIDE
     Dosage: 10 MG PO (PRE-MEDICATION PRIOR TO TRODELVY)
  14. CETIRIZINE HYDROCHLORIDE [Concomitant]
     Active Substance: CETIRIZINE HYDROCHLORIDE
     Dosage: 10 MG PO (PRE-MEDICATION PRIOR TO TRODELVY)
  15. CETIRIZINE HYDROCHLORIDE [Concomitant]
     Active Substance: CETIRIZINE HYDROCHLORIDE
     Dosage: 10 MG PO (PRE-MEDICATION PRIOR TO TRODELVY)
  16. ACETAMINOPHEN [Concomitant]
     Active Substance: ACETAMINOPHEN
     Dosage: 650 MG PO (PRE-MEDICATION PRIOR TO TRODELVY)
  17. ACETAMINOPHEN [Concomitant]
     Active Substance: ACETAMINOPHEN
     Dosage: 650 MG PO (PRE-MEDICATION PRIOR TO TRODELVY)
  18. ACETAMINOPHEN [Concomitant]
     Active Substance: ACETAMINOPHEN
     Dosage: 650 MG PO (PRE-MEDICATION PRIOR TO TRODELVY)
  19. ACETAMINOPHEN [Concomitant]
     Active Substance: ACETAMINOPHEN
     Dosage: 650 MG PO (PRE-MEDICATION PRIOR TO TRODELVY)
  20. ACETAMINOPHEN [Concomitant]
     Active Substance: ACETAMINOPHEN
     Dosage: 650 MG ORAL (PRE-MEDICATION PRIOR TO TRODELVY)
  21. ACETAMINOPHEN [Concomitant]
     Active Substance: ACETAMINOPHEN
     Dosage: 650 MG ORAL (PRE-MEDICATION PRIOR TO TRODELVY)
  22. ACETAMINOPHEN [Concomitant]
     Active Substance: ACETAMINOPHEN
     Dosage: 650 MG ORAL (PRE-MEDICATION PRIOR TO TRODELVY)
  23. ACETAMINOPHEN [Concomitant]
     Active Substance: ACETAMINOPHEN
     Dosage: 650 MG ORAL (PRE-MEDICATION PRIOR TO TRODELVY)
  24. ACETAMINOPHEN [Concomitant]
     Active Substance: ACETAMINOPHEN
     Dosage: 650 MG PO (PRE-MEDICATION PRIOR TO TRODELVY)
  25. ACETAMINOPHEN [Concomitant]
     Active Substance: ACETAMINOPHEN
     Dosage: 650 MG PO (PRE-MEDICATION PRIOR TO TRODELVY)
  26. ACETAMINOPHEN [Concomitant]
     Active Substance: ACETAMINOPHEN
     Dosage: 650 MG PO (PRE-MEDICATION PRIOR TO TRODELVY)
  27. ACETAMINOPHEN [Concomitant]
     Active Substance: ACETAMINOPHEN
     Dosage: 650 MG PO (PRE-MEDICATION PRIOR TO TRODELVY)
  28. ACETAMINOPHEN [Concomitant]
     Active Substance: ACETAMINOPHEN
     Dosage: 650 MG PO (PRE-MEDICATION PRIOR TO TRODELVY)
  29. ACETAMINOPHEN [Concomitant]
     Active Substance: ACETAMINOPHEN
     Dosage: 650 MG PO (PRE-MEDICATION PRIOR TO TRODELVY)
  30. ACETAMINOPHEN [Concomitant]
     Active Substance: ACETAMINOPHEN
     Dosage: 650 MG PO (PRE-MEDICATION PRIOR TO TRODELVY)
  31. ACETAMINOPHEN [Concomitant]
     Active Substance: ACETAMINOPHEN
     Dosage: 650 MG PO (PRE-MEDICATION PRIOR TO TRODELVY)
  32. ERIBULIN [Concomitant]
     Active Substance: ERIBULIN
  33. TAXOL [Concomitant]
     Active Substance: PACLITAXEL
  34. TAMOXIFEN [Concomitant]
     Active Substance: TAMOXIFEN
  35. PREGABALIN [Concomitant]
     Active Substance: PREGABALIN
     Dosage: 100MG IN THE MORNING
  36. PREGABALIN [Concomitant]
     Active Substance: PREGABALIN
     Dosage: FOR MUSCLE PAIN 25 MG AT NIGHT AND 100MG IN THE MORNING
  37. PREGABALIN [Concomitant]
     Active Substance: PREGABALIN
     Dosage: PREGABALIN FOR MUSCLE PAIN 25 MG AT NIGHT AND 100MG IN THE MORNING
  38. PREGABALIN [Concomitant]
     Active Substance: PREGABALIN
     Dosage: PREGABALIN FOR MUSCLE PAIN 25 MG AT NIGHT AND 100MG IN THE MORNING
  39. PREGABALIN [Concomitant]
     Active Substance: PREGABALIN
     Dosage: PREGABALIN FOR MUSCLE PAIN 25 MG AT NIGHT AND 100MG IN THE MORNING
  40. PREGABALIN [Concomitant]
     Active Substance: PREGABALIN
     Dosage: PREGABALIN FOR MUSCLE PAIN 25 MG AT NIGHT AND 100MG IN THE MORNING
  41. PREGABALIN [Concomitant]
     Active Substance: PREGABALIN
     Dosage: PREGABALIN FOR MUSCLE PAIN 25 MG AT NIGHT AND 100MG IN THE MORNING
  42. PREGABALIN [Concomitant]
     Active Substance: PREGABALIN
     Dosage: PREGABALIN FOR MUSCLE PAIN 25 MG AT NIGHT AND 100MG IN THE MORNING
  43. PREGABALIN [Concomitant]
     Active Substance: PREGABALIN
     Dosage: MUSCLE PAIN 25 MG AT NIGHT AND 100MG IN THE MORNING
  44. PREGABALIN [Concomitant]
     Active Substance: PREGABALIN
     Dosage: MUSCLE PAIN 25 MG AT NIGHT AND 100MG IN THE MORNING
  45. PREGABALIN [Concomitant]
     Active Substance: PREGABALIN
     Dosage: MUSCLE PAIN 25 MG AT NIGHT AND 100MG IN THE MORNING
  46. PREGABALIN [Concomitant]
     Active Substance: PREGABALIN
     Dosage: FOR MUSCLE PAIN 25 MG AT NIGHT AND 100MG IN THE MORNING
  47. PREGABALIN [Concomitant]
     Active Substance: PREGABALIN
     Dosage: MUSCLE PAIN 25 MG AT NIGHT AND 100MG IN THE MORNING
  48. PREGABALIN [Concomitant]
     Active Substance: PREGABALIN
     Dosage: MUSCLE PAIN 25 MG AT NIGHT AND 100MG IN THE MORNING
  49. PREGABALIN [Concomitant]
     Active Substance: PREGABALIN
     Dosage: MUSCLE PAIN 25 MG AT NIGHT AND 100MG IN THE MORNING
  50. PREGABALIN [Concomitant]
     Active Substance: PREGABALIN
     Dosage: MUSCLE PAIN 25 MG AT NIGHT AND 100MG IN THE MORNING
  51. SYNTHROID [Concomitant]
     Active Substance: LEVOTHYROXINE SODIUM
     Dosage: 0.1 MCG IN AM
  52. SYNTHROID [Concomitant]
     Active Substance: LEVOTHYROXINE SODIUM
     Dosage: 0.1 IN AM
  53. SYNTHROID [Concomitant]
     Active Substance: LEVOTHYROXINE SODIUM
     Dosage: 0.1 MG
  54. SYNTHROID [Concomitant]
     Active Substance: LEVOTHYROXINE SODIUM
     Dosage: 0.1 MG
  55. SYNTHROID [Concomitant]
     Active Substance: LEVOTHYROXINE SODIUM
     Dosage: 0.1 MG
  56. SYNTHROID [Concomitant]
     Active Substance: LEVOTHYROXINE SODIUM
     Dosage: 0.1 MG
  57. SYNTHROID [Concomitant]
     Active Substance: LEVOTHYROXINE SODIUM
     Dosage: 0.1 MG
  58. SYNTHROID [Concomitant]
     Active Substance: LEVOTHYROXINE SODIUM
     Dosage: 0.1 MG
  59. SYNTHROID [Concomitant]
     Active Substance: LEVOTHYROXINE SODIUM
     Dosage: 0.1 IN AM
  60. SYNTHROID [Concomitant]
     Active Substance: LEVOTHYROXINE SODIUM
     Dosage: 0.1 IN AM
  61. SYNTHROID [Concomitant]
     Active Substance: LEVOTHYROXINE SODIUM
     Dosage: 0.1 IN AM
  62. SYNTHROID [Concomitant]
     Active Substance: LEVOTHYROXINE SODIUM
     Dosage: 0.1 IN AM
  63. SYNTHROID [Concomitant]
     Active Substance: LEVOTHYROXINE SODIUM
     Dosage: 0.1 IN AM
  64. CALCIUM LACTATE\CALCIUM PHOSPHATE\CHOLECALCIFEROL [Concomitant]
     Active Substance: CALCIUM LACTATE\CALCIUM PHOSPHATE\CHOLECALCIFEROL
  65. ADRIAMYCIN [Concomitant]
     Active Substance: DOXORUBICIN HYDROCHLORIDE
  66. CYCLOPHOSPHAMIDE [Concomitant]
     Active Substance: CYCLOPHOSPHAMIDE
  67. AC [CYCLOPHOSPHAMIDE;DOXORUBICIN HYDROCHLORIDE] [Concomitant]
  68. VITAMIN C [Concomitant]
     Active Substance: ASCORBIC ACID

REACTIONS (40)
  - Anal haemorrhage [Not Recovered/Not Resolved]
  - Eye irritation [Not Recovered/Not Resolved]
  - Urinary tract disorder [Not Recovered/Not Resolved]
  - Eye pruritus [Not Recovered/Not Resolved]
  - Dysphonia [Not Recovered/Not Resolved]
  - Dyspnoea [Not Recovered/Not Resolved]
  - Vomiting [Not Recovered/Not Resolved]
  - Nausea [Not Recovered/Not Resolved]
  - Fatigue [Not Recovered/Not Resolved]
  - Fatigue [Not Recovered/Not Resolved]
  - Fatigue [Unknown]
  - Insomnia [Not Recovered/Not Resolved]
  - Nausea [Not Recovered/Not Resolved]
  - Nausea [Unknown]
  - Pain [Unknown]
  - Weight decreased [Not Recovered/Not Resolved]
  - Alopecia [Not Recovered/Not Resolved]
  - Psychological trauma [Not Recovered/Not Resolved]
  - Self esteem decreased [Not Recovered/Not Resolved]
  - Neutrophil count decreased [Not Recovered/Not Resolved]
  - Alopecia [Not Recovered/Not Resolved]
  - Asthenia [Unknown]
  - Pallor [Unknown]
  - Dizziness [Unknown]
  - Weight fluctuation [Not Recovered/Not Resolved]
  - Weight increased [Unknown]
  - Illness [Not Recovered/Not Resolved]
  - Weight increased [Unknown]
  - Inappropriate schedule of product administration [Unknown]
  - Feeling abnormal [Unknown]
  - General physical health deterioration [Unknown]
  - Impaired quality of life [Unknown]
  - Inappropriate schedule of product administration [Not Recovered/Not Resolved]
  - Ocular hyperaemia [Not Recovered/Not Resolved]
  - Pollakiuria [Not Recovered/Not Resolved]
  - Weight fluctuation [Not Recovered/Not Resolved]
  - Weight fluctuation [Not Recovered/Not Resolved]
  - Weight fluctuation [Not Recovered/Not Resolved]
  - Weight fluctuation [Not Recovered/Not Resolved]
  - Weight fluctuation [Unknown]

NARRATIVE: CASE EVENT DATE: 20220601
